FAERS Safety Report 8327950-8 (Version None)
Quarter: 2012Q2

REPORT INFORMATION
  Report Type: 
  Country: None (occurrence: None)
  Receive Date: 20120502
  Receipt Date: 20120424
  Transmission Date: 20120825
  Serious: Yes (Hospitalization, Other)
  Sender: FDA-Public Use
  Company Number: US-BAYER-201017607NA

PATIENT
  Age: 30 Year
  Sex: Female
  Weight: 63 kg

DRUGS (5)
  1. YAZ [Suspect]
     Indication: CONTRACEPTION
     Dosage: UNK
     Dates: start: 20070601, end: 20090624
  2. LEVAQUIN [Concomitant]
     Dosage: UNK
     Dates: start: 20090401, end: 20090408
  3. NAPROXEN [Concomitant]
     Dosage: UNK
     Dates: start: 20020831, end: 20020910
  4. ETODOLAC [Concomitant]
     Dosage: UNK
     Dates: start: 20081204, end: 20081219
  5. NAPROXEN [Concomitant]
     Dosage: UNK
     Dates: start: 20081106, end: 20081206

REACTIONS (13)
  - SCAR [None]
  - CHOLECYSTITIS CHRONIC [None]
  - ABDOMINAL DISTENSION [None]
  - EMOTIONAL DISTRESS [None]
  - PULMONARY EMBOLISM [None]
  - DYSPEPSIA [None]
  - DEPRESSION [None]
  - ANXIETY [None]
  - LOBAR PNEUMONIA [None]
  - CHOLECYSTECTOMY [None]
  - DIARRHOEA [None]
  - FLATULENCE [None]
  - CONSTIPATION [None]
